FAERS Safety Report 24330258 (Version 4)
Quarter: 2025Q3

REPORT INFORMATION
  Report Type: Spontaneous
  Country: US (occurrence: US)
  Receive Date: 20240918
  Receipt Date: 20250810
  Transmission Date: 20251021
  Serious: No
  Sender: ALEXION PHARMACEUTICALS
  Company Number: 2024A206338

PATIENT
  Sex: Female

DRUGS (1)
  1. BREZTRI [Suspect]
     Active Substance: BUDESONIDE\FORMOTEROL\GLYCOPYRROLATE
     Indication: Product used for unknown indication

REACTIONS (10)
  - Dyspnoea [Unknown]
  - Irritability [Unknown]
  - Speech disorder [Unknown]
  - Malaise [Unknown]
  - Impatience [Unknown]
  - Off label use [Unknown]
  - Drug dose omission by device [Unknown]
  - Wrong technique in device usage process [Unknown]
  - Product label issue [Unknown]
  - Device delivery system issue [Unknown]
